FAERS Safety Report 7002712-2 (Version None)
Quarter: 2010Q3

REPORT INFORMATION
  Report Type: 
  Country: None (occurrence: None)
  Receive Date: 20100920
  Receipt Date: 20100908
  Transmission Date: 20110219
  Serious: Yes (Hospitalization)
  Sender: FDA-Public Use
  Company Number: FR-PFIZER INC-2010113132

PATIENT
  Age: 81 Year
  Sex: Male

DRUGS (3)
  1. SALAZOPYRINE [Suspect]
     Dosage: 2 DAILY DOSES (TABLETS)
     Route: 048
     Dates: start: 20100323
  2. SALAZOPYRINE [Suspect]
     Dosage: 6 DAILY DOSES
     Dates: start: 20100414, end: 20100421
  3. AUGMENTIN '125' [Suspect]
     Dosage: 3 DF, 1X/DAY
     Route: 048
     Dates: start: 20100323, end: 20100421

REACTIONS (1)
  - MIXED LIVER INJURY [None]
